FAERS Safety Report 5715518-9 (Version None)
Quarter: 2008Q2

REPORT INFORMATION
  Report Type: 
  Country: None (occurrence: None)
  Receive Date: 20080422
  Receipt Date: 20080407
  Transmission Date: 20081010
  Serious: Yes (Hospitalization)
  Sender: FDA-Public Use
  Company Number: 2008BI001704

PATIENT
  Age: 56 Year
  Sex: Female
  Weight: 80 kg

DRUGS (19)
  1. AVONEX [Suspect]
     Indication: MULTIPLE SCLEROSIS
     Dosage: 30 UG; IM
     Route: 030
  2. DILANTIN [Concomitant]
  3. DEPAKOTE [Concomitant]
  4. AMITRIPTLINE HCL [Concomitant]
  5. FLOMAX [Concomitant]
  6. NAMENDA [Concomitant]
  7. ARICEPT [Concomitant]
  8. BACLOFEN [Concomitant]
  9. PROVIGIL [Concomitant]
  10. OMEGA-3 [Concomitant]
  11. ASCORBIC ACID [Concomitant]
  12. VITAMIN E [Concomitant]
  13. GINKO BILOBA [Concomitant]
  14. METAMUCIL [Concomitant]
  15. CRANBERRY SUPPLIMENT [Concomitant]
  16. STOOL SOFTENER [Concomitant]
  17. CALCIUM AND  VITAMIN D [Concomitant]
  18. DOXYCYCLINE ASPIRTN [Concomitant]
  19. ASPIRIN [Concomitant]

REACTIONS (9)
  - ANXIETY [None]
  - CONVULSION [None]
  - DEMENTIA [None]
  - GAIT DISTURBANCE [None]
  - MUSCLE SPASTICITY [None]
  - PROGRESSIVE MULTIPLE SCLEROSIS [None]
  - TREMOR [None]
  - VIBRATION TEST ABNORMAL [None]
  - WHITE BLOOD CELL COUNT DECREASED [None]
